FAERS Safety Report 11680280 (Version 2)
Quarter: 2015Q4

REPORT INFORMATION
  Report Type: Spontaneous
  Country: US (occurrence: US)
  Receive Date: 20151027
  Receipt Date: 20151104
  Transmission Date: 20160304
  Serious: No
  Sender: FDA-Public Use
  Company Number: US-ELI_LILLY_AND_COMPANY-US200912005522

PATIENT
  Age: 64 Year
  Sex: Female

DRUGS (8)
  1. FORTEO [Suspect]
     Active Substance: TERIPARATIDE
     Dosage: 20 UG, DAILY (1/D)
  2. ORENCIA [Concomitant]
     Active Substance: ABATACEPT
     Indication: ARTHRITIS
  3. HORMONES NOS [Concomitant]
     Active Substance: UNSPECIFIED INGREDIENT
  4. FORTEO [Suspect]
     Active Substance: TERIPARATIDE
     Dosage: 20 UG, DAILY (1/D)
  5. PREDNISONE. [Concomitant]
     Active Substance: PREDNISONE
  6. FORTEO [Suspect]
     Active Substance: TERIPARATIDE
     Indication: OSTEOPOROSIS
     Dosage: 20 UG, DAILY (1/D)
  7. VITAMINS NOS [Concomitant]
     Active Substance: VITAMINS
  8. MINERALS NOS [Concomitant]
     Active Substance: MINERALS

REACTIONS (7)
  - Bronchitis [Unknown]
  - Pneumonia [Unknown]
  - Hot flush [Unknown]
  - Nasopharyngitis [Unknown]
  - Sinusitis [Unknown]
  - Pain [Unknown]
  - Night sweats [Not Recovered/Not Resolved]

NARRATIVE: CASE EVENT DATE: 201012
